FAERS Safety Report 26198459 (Version 1)
Quarter: 2025Q4

REPORT INFORMATION
  Report Type: Spontaneous
  Country: JP (occurrence: JP)
  Receive Date: 20251224
  Receipt Date: 20251224
  Transmission Date: 20260117
  Serious: Yes (Death, Hospitalization, Other)
  Sender: MERCK SHARP & DOHME LLC
  Company Number: JP-MSD-M2021-03220

PATIENT
  Age: 74 Year
  Sex: Male
  Weight: 47 kg

DRUGS (10)
  1. KEYTRUDA [Suspect]
     Active Substance: PEMBROLIZUMAB
     Indication: Lung adenocarcinoma stage IV
     Dosage: DOSE DESCRIPTION : 200 MILLIGRAM, Q3W?DAILY DOSE : 9.4 MILLIGRAM?REGIMEN DOSE : 4000  MILLIGRAM
     Route: 041
     Dates: start: 20190827, end: 20201017
  2. KEYTRUDA [Suspect]
     Active Substance: PEMBROLIZUMAB
     Indication: Lung adenocarcinoma stage IV
     Dosage: DOSE DESCRIPTION : 400 MILLIGRAM, EVERY 6 WEEKS?DAILY DOSE : 9.6 MILLIGRAM?REGIMEN DOSE : 1200  M...
     Route: 041
     Dates: start: 20201018, end: 20210127
  3. CARBOPLATIN [Suspect]
     Active Substance: CARBOPLATIN
     Indication: Lung adenocarcinoma stage IV
     Dosage: DOSE DESCRIPTION : 450 MILLIGRAM, Q3W?DAILY DOSE : 21.15 MILLIGRAM?REGIMEN DOSE : 900  MILLIGRAM
     Route: 041
     Dates: start: 20190827, end: 20190917
  4. CARBOPLATIN [Suspect]
     Active Substance: CARBOPLATIN
     Indication: Lung adenocarcinoma stage IV
     Dosage: DOSE DESCRIPTION : 330 MILLIGRAM, Q3W?DAILY DOSE : 15.51 MILLIGRAM?REGIMEN DOSE : 330  MILLIGRAM
     Route: 041
     Dates: start: 20190918, end: 20191008
  5. CARBOPLATIN [Suspect]
     Active Substance: CARBOPLATIN
     Indication: Lung adenocarcinoma stage IV
     Dosage: DOSE DESCRIPTION : 250 MILLIGRAM, Q3W?DAILY DOSE : 11.75 MILLIGRAM?REGIMEN DOSE : 250  MILLIGRAM
     Route: 041
     Dates: start: 20191009
  6. CARBOPLATIN [Suspect]
     Active Substance: CARBOPLATIN
     Indication: Lung adenocarcinoma stage IV
     Dosage: DOSE DESCRIPTION : AUC2.5, Q3W
     Route: 042
     Dates: start: 20210128, end: 20210128
  7. PEMETREXED DISODIUM [Suspect]
     Active Substance: PEMETREXED DISODIUM
     Indication: Lung adenocarcinoma stage IV
     Dosage: DOSE DESCRIPTION : 750 MILLIGRAM, Q3W?DAILY DOSE : 35.25 MILLIGRAM?REGIMEN DOSE : 1500  MILLIGRAM
     Route: 041
     Dates: start: 20190827, end: 20190917
  8. PEMETREXED DISODIUM [Suspect]
     Active Substance: PEMETREXED DISODIUM
     Indication: Lung adenocarcinoma stage IV
     Dosage: DOSE DESCRIPTION : 550 MILLIGRAM, Q3W?DAILY DOSE : 25.85 MILLIGRAM?REGIMEN DOSE : 550  MILLIGRAM
     Route: 041
     Dates: start: 20190918, end: 20191008
  9. PEMETREXED DISODIUM [Suspect]
     Active Substance: PEMETREXED DISODIUM
     Indication: Lung adenocarcinoma stage IV
     Dosage: DOSE DESCRIPTION : 350 MILLIGRAM, Q3W?DAILY DOSE : 16.45 MILLIGRAM?REGIMEN DOSE : 350  MILLIGRAM
     Route: 041
     Dates: start: 20191009
  10. RABEPRAZOLE SODIUM [Concomitant]
     Active Substance: RABEPRAZOLE SODIUM
     Indication: Prophylaxis against gastrointestinal ulcer
     Dosage: DOSE DESCRIPTION : 10 MILLIGRAM, QD?DAILY DOSE : 10 MILLIGRAM
     Route: 048
     Dates: end: 20210209

REACTIONS (17)
  - Small intestinal perforation [Fatal]
  - Immune-mediated enterocolitis [Fatal]
  - Malignant neoplasm progression [Unknown]
  - Ascites [Unknown]
  - Gastrointestinal necrosis [Unknown]
  - Myelosuppression [Unknown]
  - Febrile neutropenia [Recovered/Resolved]
  - Neutrophil count decreased [Recovered/Resolved]
  - Blood alkaline phosphatase increased [Not Recovered/Not Resolved]
  - C-reactive protein increased [Unknown]
  - Biliary tract disorder [Unknown]
  - Rash [Unknown]
  - Hypoalbuminaemia [Unknown]
  - Pleural effusion [Unknown]
  - Hyperuricaemia [Unknown]
  - Circulatory collapse [Fatal]
  - Peritonitis [Fatal]

NARRATIVE: CASE EVENT DATE: 20190101
